FAERS Safety Report 15834102 (Version 1)
Quarter: 2019Q1

REPORT INFORMATION
  Report Type: Spontaneous
  Country: CN (occurrence: CN)
  Receive Date: 20190116
  Receipt Date: 20190116
  Transmission Date: 20190417
  Serious: Yes (Life-Threatening, Other)
  Sender: FDA-Public Use
  Company Number: CN-BAUSCH-BL-2019-001267

PATIENT
  Age: 52 Year
  Sex: Female

DRUGS (4)
  1. GLYCEROL FRUCTOSE [Suspect]
     Active Substance: FRUCTOSE\GLYCERIN
     Indication: DEHYDRATION
     Route: 065
     Dates: start: 20180201, end: 20180210
  2. DEXAMETHASONE. [Suspect]
     Active Substance: DEXAMETHASONE
     Indication: PRODUCT USED FOR UNKNOWN INDICATION
     Route: 065
     Dates: start: 20180208, end: 20180210
  3. MANNITOL. [Suspect]
     Active Substance: MANNITOL
     Route: 065
     Dates: start: 20180208, end: 20180210
  4. MANNITOL. [Suspect]
     Active Substance: MANNITOL
     Indication: DEHYDRATION
     Route: 065
     Dates: start: 20180201, end: 20180207

REACTIONS (1)
  - Drug ineffective [Recovered/Resolved]

NARRATIVE: CASE EVENT DATE: 20180120
